FAERS Safety Report 8177146-8 (Version None)
Quarter: 2012Q1

REPORT INFORMATION
  Report Type: 
  Country: None (occurrence: None)
  Receive Date: 20120301
  Receipt Date: 20120224
  Transmission Date: 20120608
  Serious: Yes (Hospitalization)
  Sender: FDA-Public Use
  Company Number: JP-GLAXOSMITHKLINE-B0782200A

PATIENT
  Sex: Female

DRUGS (5)
  1. ZYPREXA [Concomitant]
     Dosage: 5MG PER DAY
     Route: 048
     Dates: start: 20120201, end: 20120212
  2. LEVOTHYROXINE SODIUM [Concomitant]
     Dosage: 25MG PER DAY
     Route: 048
     Dates: start: 20120104
  3. LAMICTAL [Suspect]
     Indication: BIPOLAR DISORDER
     Dosage: 25MG PER DAY
     Route: 048
     Dates: start: 20120131, end: 20120212
  4. ZOLOFT [Concomitant]
     Indication: DEPRESSION
     Dosage: 75MG PER DAY
     Route: 048
     Dates: start: 20120116
  5. AMOXAPINE [Concomitant]
     Indication: DEPRESSION
     Dosage: 10MG PER DAY
     Route: 048
     Dates: start: 20120116, end: 20120129

REACTIONS (4)
  - PLATELET COUNT DECREASED [None]
  - SUBCUTANEOUS HAEMATOMA [None]
  - RASH [None]
  - PETECHIAE [None]
